FAERS Safety Report 6916798-4 (Version None)
Quarter: 2010Q3

REPORT INFORMATION
  Report Type: 
  Country: None (occurrence: None)
  Receive Date: 20100810
  Receipt Date: 20100803
  Transmission Date: 20110219
  Serious: Yes (Hospitalization)
  Sender: FDA-Public Use
  Company Number: US-GENZYME-FABR-1001399

PATIENT

DRUGS (14)
  1. FABRAZYME [Suspect]
     Indication: FABRY'S DISEASE
     Dosage: 60 MG, Q2W
     Route: 042
     Dates: start: 20081017, end: 20091101
  2. FABRAZYME [Suspect]
     Dosage: 35 MG, Q3W
     Dates: start: 20091111, end: 20100426
  3. FABRAZYME [Suspect]
     Dosage: 35 MG, Q4W
     Route: 042
     Dates: start: 20100426, end: 20100601
  4. ASPIRIN [Concomitant]
  5. FOSAMAX [Concomitant]
  6. CALTRATE [Concomitant]
  7. CELEXA [Concomitant]
  8. LAMICTAL [Concomitant]
  9. LIPITOR [Concomitant]
  10. LOVAZA [Concomitant]
     Indication: PRODUCT USED FOR UNKNOWN INDICATION
  11. MULTI-VIT [Concomitant]
     Indication: PRODUCT USED FOR UNKNOWN INDICATION
  12. GLUCOSAMINE [Concomitant]
     Indication: PRODUCT USED FOR UNKNOWN INDICATION
  13. LORAZEPAM [Concomitant]
     Indication: PRODUCT USED FOR UNKNOWN INDICATION
     Dosage: UNK
  14. PLAVIX [Concomitant]
     Indication: PRODUCT USED FOR UNKNOWN INDICATION

REACTIONS (1)
  - TRANSIENT ISCHAEMIC ATTACK [None]
